FAERS Safety Report 5364720-7 (Version None)
Quarter: 2007Q2

REPORT INFORMATION
  Report Type: 
  Country: None (occurrence: None)
  Receive Date: 20070530
  Receipt Date: 20070102
  Transmission Date: 20071010
  Serious: No
  Sender: FDA-Public Use
  Company Number: 2006PV008376

PATIENT
  Age: 68 Year
  Sex: Male
  Weight: 102.9665 kg

DRUGS (8)
  1. BYETTA [Suspect]
     Indication: DIABETES MELLITUS NON-INSULIN-DEPENDENT
     Dosage: SEE IMAGE
     Route: 058
     Dates: start: 20060101, end: 20061001
  2. BYETTA [Suspect]
     Indication: DIABETES MELLITUS NON-INSULIN-DEPENDENT
     Dosage: SEE IMAGE
     Route: 058
     Dates: start: 20060203
  3. BYETTA [Suspect]
     Indication: DIABETES MELLITUS NON-INSULIN-DEPENDENT
     Dosage: SEE IMAGE
     Route: 058
     Dates: start: 20061001
  4. BYETTA [Suspect]
  5. AMARYL [Concomitant]
  6. LANTUS [Concomitant]
  7. HUMALOG [Concomitant]
  8. GLUCOPHAGE [Concomitant]

REACTIONS (8)
  - ABDOMINAL PAIN [None]
  - DIARRHOEA [None]
  - ERUCTATION [None]
  - FATIGUE [None]
  - FEELING COLD [None]
  - NAUSEA [None]
  - VERTIGO [None]
  - WEIGHT DECREASED [None]
